FAERS Safety Report 6083652-2 (Version None)
Quarter: 2009Q1

REPORT INFORMATION
  Report Type: 
  Country: None (occurrence: None)
  Receive Date: 20090219
  Receipt Date: 20090212
  Transmission Date: 20090719
  Serious: Yes (Other)
  Sender: FDA-Public Use
  Company Number: US-AMGEN-QUU331055

PATIENT
  Sex: Female
  Weight: 73.5 kg

DRUGS (4)
  1. NEUPOGEN [Suspect]
     Indication: NEUTROPENIA
     Route: 058
     Dates: start: 20081120
  2. PEGASYS [Concomitant]
  3. RIBAVIRIN [Concomitant]
  4. MULTIPLE VITAMINS [Concomitant]

REACTIONS (2)
  - LIP SWELLING [None]
  - URTICARIA [None]
